FAERS Safety Report 10231307 (Version 6)
Quarter: 2014Q4

REPORT INFORMATION
  Report Type: Report from Study
  Country: NL (occurrence: NL)
  Receive Date: 20140611
  Receipt Date: 20141011
  Transmission Date: 20150528
  Serious: Yes (Death, Life-Threatening, Hospitalization)
  Sender: FDA-Public Use
  Company Number: PHHO2014NL008091

PATIENT

DRUGS (10)
  1. RITUXIMAB [Concomitant]
     Active Substance: RITUXIMAB
     Dosage: 375 MG/M2, UNK
     Dates: start: 20140226, end: 20140226
  2. RITUXIMAB [Concomitant]
     Active Substance: RITUXIMAB
     Dosage: 375 MG/M2, UNK
     Dates: start: 20140314, end: 20140314
  3. VALACICLOVIR [Concomitant]
     Active Substance: VALACYCLOVIR HYDROCHLORIDE
     Indication: PROPHYLAXIS
     Dosage: 500 MG, BID
     Route: 048
  4. AMN107 [Suspect]
     Active Substance: NILOTINIB
     Dosage: 200 MG, BID
     Route: 048
     Dates: start: 20140611, end: 20140721
  5. RITUXIMAB [Concomitant]
     Active Substance: RITUXIMAB
     Indication: GRAFT VERSUS HOST DISEASE
     Dosage: 375 MG/M2, UNK
     Dates: start: 20140219, end: 20140219
  6. RITUXIMAB [Concomitant]
     Active Substance: RITUXIMAB
     Dosage: 375 MG/M2, UNK
     Dates: start: 20140306, end: 20140306
  7. AMN107 [Suspect]
     Active Substance: NILOTINIB
     Indication: GRAFT VERSUS HOST DISEASE
     Dosage: 200 MG, BID
     Route: 048
     Dates: start: 20140327, end: 20140530
  8. PREDNISOLONE. [Concomitant]
     Active Substance: PREDNISOLONE
     Indication: GRAFT VERSUS HOST DISEASE
     Dosage: 25 MG, UNK
     Route: 048
  9. CELLCEPT [Concomitant]
     Active Substance: MYCOPHENOLATE MOFETIL\MYCOPHENOLATE MOFETIL HYDROCHLORIDE
     Indication: GRAFT VERSUS HOST DISEASE
     Dosage: 750 MG, TID
     Route: 048
  10. COTRIMOXAZOL [Concomitant]
     Indication: PROPHYLAXIS
     Dosage: 480 MG, QD
     Route: 048

REACTIONS (4)
  - Death [Fatal]
  - Diarrhoea [Recovered/Resolved]
  - Hypogammaglobulinaemia [Recovering/Resolving]
  - Osteomyelitis [Recovering/Resolving]

NARRATIVE: CASE EVENT DATE: 20140530
